FAERS Safety Report 15276070 (Version 1)
Quarter: 2018Q3

REPORT INFORMATION
  Report Type: Report from Study
  Country: AT (occurrence: AT)
  Receive Date: 20180814
  Receipt Date: 20180814
  Transmission Date: 20181010
  Serious: Yes (Other)
  Sender: FDA-Public Use
  Company Number: AT-TEVA-2018-AT-939768

PATIENT
  Age: 63 Year
  Sex: Male
  Weight: 62 kg

DRUGS (20)
  1. GEMCITABINE [Suspect]
     Active Substance: GEMCITABINE\GEMCITABINE HYDROCHLORIDE
     Route: 065
     Dates: start: 201801
  2. GEMCITABINE [Suspect]
     Active Substance: GEMCITABINE\GEMCITABINE HYDROCHLORIDE
     Dosage: 1431MILLIGRAM/SQ. METER
     Route: 065
     Dates: start: 201708
  3. ABRAXANE [Suspect]
     Active Substance: PACLITAXEL
     Dosage: 176 MG/M2 DAILY; 176 MILLIGRAM/SQ. METER
     Route: 041
     Dates: start: 201708
  4. GEMCITABINE [Suspect]
     Active Substance: GEMCITABINE\GEMCITABINE HYDROCHLORIDE
     Dosage: 1399MILLIGRAM/SQ. METER
     Route: 065
     Dates: start: 20171006
  5. GEMCITABINE [Suspect]
     Active Substance: GEMCITABINE\GEMCITABINE HYDROCHLORIDE
     Dosage: 1749 MILLIGRAM/SQ. METER
     Route: 065
     Dates: start: 20170809
  6. GEMCITABINE [Suspect]
     Active Substance: GEMCITABINE\GEMCITABINE HYDROCHLORIDE
     Indication: PANCREATIC CARCINOMA
     Dosage: 1420 MILLIGRAM/SQ. METER
     Route: 065
     Dates: start: 201710
  7. ABRAXANE [Suspect]
     Active Substance: PACLITAXEL
     Route: 041
     Dates: start: 2017
  8. GEMCITABINE [Suspect]
     Active Substance: GEMCITABINE\GEMCITABINE HYDROCHLORIDE
     Dosage: 1420 MILLIGRAM/SQ. METER
     Route: 065
     Dates: start: 20170908
  9. GEMCITABINE [Suspect]
     Active Substance: GEMCITABINE\GEMCITABINE HYDROCHLORIDE
     Dosage: 1393 MILLIGRAM/SQ. METER
     Route: 065
     Dates: start: 201709
  10. GEMCITABINE [Suspect]
     Active Substance: GEMCITABINE\GEMCITABINE HYDROCHLORIDE
     Dosage: 1437 MILLIGRAM/SQ. METER
     Route: 065
     Dates: start: 201710
  11. GEMCITABINE [Suspect]
     Active Substance: GEMCITABINE\GEMCITABINE HYDROCHLORIDE
     Dosage: 1441 MILLIGRAM/SQ. METER
     Route: 065
     Dates: start: 20171103
  12. ABRAXANE [Suspect]
     Active Substance: PACLITAXEL
     Dosage: 176 MG/M2 DAILY; 176 MILLIGRAM/SQ. METER
     Route: 041
     Dates: start: 20170908
  13. LANTUS [Concomitant]
     Active Substance: INSULIN GLARGINE
     Indication: TYPE 2 DIABETES MELLITUS
     Dosage: 0.0?6 IE
     Route: 065
  14. GEMCITABINE [Suspect]
     Active Substance: GEMCITABINE\GEMCITABINE HYDROCHLORIDE
     Dosage: 1424 MILLIGRAM/SQ. METER
     Route: 065
     Dates: start: 201709
  15. NOVORAPID [Concomitant]
     Active Substance: INSULIN ASPART
     Indication: TYPE 2 DIABETES MELLITUS
     Dosage: 6.0?4 IE
     Route: 065
  16. ABRAXANE [Suspect]
     Active Substance: PACLITAXEL
     Dosage: 176 MG/M2 DAILY; 176 MILLIGRAM/SQ. METER
     Route: 041
     Dates: start: 201708
  17. ABRAXANE [Suspect]
     Active Substance: PACLITAXEL
     Indication: PANCREATIC CARCINOMA
     Dosage: 220 MG/M2 DAILY; 220 MILLIGRAM/SQ. METER
     Route: 041
     Dates: start: 20170809
  18. PASPERTIN [Concomitant]
     Indication: NAUSEA
     Route: 048
  19. GEMCITABINE [Suspect]
     Active Substance: GEMCITABINE\GEMCITABINE HYDROCHLORIDE
     Dosage: 1430 MILLIGRAM/SQ. METER
     Route: 065
     Dates: start: 201708
  20. GEMCITABINE [Suspect]
     Active Substance: GEMCITABINE\GEMCITABINE HYDROCHLORIDE
     Dosage: 1382 MILLIGRAM/SQ. METER
     Route: 065
     Dates: start: 201711

REACTIONS (3)
  - Thrombocytopenia [Recovered/Resolved]
  - Neuropathy peripheral [Recovered/Resolved]
  - Neuropathy peripheral [Not Recovered/Not Resolved]

NARRATIVE: CASE EVENT DATE: 20170817
